FAERS Safety Report 13841620 (Version 1)
Quarter: 2017Q3

REPORT INFORMATION
  Report Type: Report from Study
  Country: US (occurrence: US)
  Receive Date: 20170807
  Receipt Date: 20170807
  Transmission Date: 20171127
  Serious: No
  Sender: FDA-Public Use
  Company Number: US-AMGEN-USASL2016115405

PATIENT
  Age: 52 Year
  Sex: Male

DRUGS (1)
  1. NPLATE [Suspect]
     Active Substance: ROMIPLOSTIM
     Indication: IMMUNE THROMBOCYTOPENIC PURPURA
     Dosage: UNK UNK, UNK
     Route: 065
     Dates: start: 20160822

REACTIONS (5)
  - Insomnia [Unknown]
  - Pain in extremity [Unknown]
  - Musculoskeletal pain [Unknown]
  - Influenza like illness [Unknown]
  - Arthralgia [Unknown]

NARRATIVE: CASE EVENT DATE: 201608
